FAERS Safety Report 7111185-0 (Version None)
Quarter: 2010Q4

REPORT INFORMATION
  Report Type: 
  Country: None (occurrence: None)
  Receive Date: 20101118
  Receipt Date: 20101112
  Transmission Date: 20110411
  Serious: Yes (Hospitalization, Other)
  Sender: FDA-Public Use
  Company Number: GB-ABBOTT-10P-167-0674420-00

PATIENT
  Sex: Female

DRUGS (6)
  1. HUMIRA [Suspect]
     Indication: PSORIASIS
     Dates: start: 20100801
  2. METFORMIN HCL [Concomitant]
     Indication: DIABETES MELLITUS
     Route: 048
  3. NAPROXEN [Concomitant]
     Indication: ANALGESIC THERAPY
     Route: 048
  4. TRAMADOL HCL [Concomitant]
     Indication: ANALGESIC THERAPY
     Route: 048
  5. ELOCON [Concomitant]
     Indication: PSORIASIS
     Route: 061
  6. TRIMOVATAL CREAM [Concomitant]
     Indication: PSORIASIS
     Route: 061

REACTIONS (1)
  - ABORTION SPONTANEOUS [None]
